FAERS Safety Report 12587950 (Version 2)
Quarter: 2016Q3

REPORT INFORMATION
  Report Type: Spontaneous
  Country: US (occurrence: US)
  Receive Date: 20160725
  Receipt Date: 20160823
  Transmission Date: 20161109
  Serious: Yes (Life-Threatening, Other)
  Sender: FDA-Public Use
  Company Number: US-SA-2016SA132410

PATIENT
  Age: 60 Year
  Sex: Female
  Weight: 42.1 kg

DRUGS (4)
  1. VITAMIN D [Concomitant]
     Active Substance: CHOLECALCIFEROL
     Indication: VITAMIN D DEFICIENCY
     Route: 048
     Dates: start: 201402
  2. EFFEXOR XR [Concomitant]
     Active Substance: VENLAFAXINE HYDROCHLORIDE
     Indication: DEPRESSION
     Route: 048
     Dates: start: 201402
  3. AUBAGIO [Suspect]
     Active Substance: TERIFLUNOMIDE
     Indication: MULTIPLE SCLEROSIS
     Route: 048
     Dates: start: 201408, end: 20160701
  4. VITAMINS NOS [Concomitant]
     Active Substance: VITAMINS
     Indication: ROUTINE HEALTH MAINTENANCE
     Route: 048
     Dates: start: 201402

REACTIONS (6)
  - Ascites [Not Recovered/Not Resolved]
  - Mesenteric neoplasm [Not Recovered/Not Resolved]
  - Adnexa uteri mass [Not Recovered/Not Resolved]
  - Ovarian cancer stage III [Unknown]
  - Pleural effusion [Not Recovered/Not Resolved]
  - Metastases to peritoneum [Not Recovered/Not Resolved]

NARRATIVE: CASE EVENT DATE: 2016
